FAERS Safety Report 6382545-0 (Version None)
Quarter: 2009Q3

REPORT INFORMATION
  Report Type: 
  Country: None (occurrence: None)
  Receive Date: 20090930
  Receipt Date: 20090924
  Transmission Date: 20100115
  Serious: Yes (Other)
  Sender: FDA-Public Use
  Company Number: A0808326A

PATIENT
  Sex: Male

DRUGS (3)
  1. HYCAMTIN [Suspect]
     Route: 048
  2. CAPECITABINE [Suspect]
     Indication: DRUG USE FOR UNKNOWN INDICATION
     Route: 065
  3. UNKNOWN [Concomitant]

REACTIONS (6)
  - DRUG DISPENSING ERROR [None]
  - ERYTHEMA [None]
  - OEDEMA PERIPHERAL [None]
  - PALMAR-PLANTAR ERYTHRODYSAESTHESIA SYNDROME [None]
  - RASH [None]
  - SKIN EXFOLIATION [None]
